FAERS Safety Report 4732052-3 (Version None)
Quarter: 2005Q3

REPORT INFORMATION
  Report Type: 
  Country: None (occurrence: None)
  Receive Date: 20050722
  Receipt Date: 20041006
  Transmission Date: 20060218
  Serious: Yes (Hospitalization)
  Sender: FDA-Public Use
  Company Number: 2004SP000237

PATIENT
  Age: 5 Year
  Sex: Male
  Weight: 19.9583 kg

DRUGS (1)
  1. XOPENEX [Suspect]
     Indication: ASTHMA
     Dosage: 0.63 MG/3ML;INHALATION
     Route: 055

REACTIONS (1)
  - ASTHMA [None]
